FAERS Safety Report 6517274-3 (Version None)
Quarter: 2009Q4

REPORT INFORMATION
  Report Type: 
  Country: None (occurrence: None)
  Receive Date: 20091223
  Receipt Date: 20091215
  Transmission Date: 20100525
  Serious: Yes (Death)
  Sender: FDA-Public Use
  Company Number: FI-GENENTECH-295892

PATIENT
  Age: 55 Year
  Sex: Female

DRUGS (6)
  1. MABTHERA [Suspect]
     Indication: RHEUMATOID ARTHRITIS
     Dosage: 1000 MG, Q2W
     Route: 042
     Dates: start: 20090302, end: 20090316
  2. MABTHERA [Suspect]
     Dosage: REPORTED DOSE: 1000 MG X 2
     Route: 042
     Dates: start: 20090921, end: 20091005
  3. OXIKLORIN [Concomitant]
     Indication: RHEUMATOID ARTHRITIS
     Dosage: UNK
  4. TREXAN (METHOTREXATE) [Concomitant]
     Indication: RHEUMATOID ARTHRITIS
     Dosage: UNK
  5. SALAZOPYRIN [Concomitant]
     Indication: RHEUMATOID ARTHRITIS
     Dosage: UNK
  6. REUMACON [Concomitant]
     Indication: RHEUMATOID ARTHRITIS
     Dosage: UNK

REACTIONS (2)
  - DEEP VEIN THROMBOSIS [None]
  - PULMONARY EMBOLISM [None]
